FAERS Safety Report 25037379 (Version 2)
Quarter: 2025Q1

REPORT INFORMATION
  Report Type: Spontaneous
  Country: FR (occurrence: FR)
  Receive Date: 20250304
  Receipt Date: 20250326
  Transmission Date: 20250408
  Serious: Yes (Other)
  Sender: BAUSCH AND LOMB
  Company Number: FR-MLMSERVICE-20250224-PI413880-00177-1

PATIENT
  Age: 68 Year
  Sex: Male

DRUGS (1)
  1. HYDROCORTISONE [Suspect]
     Active Substance: HYDROCORTISONE
     Indication: Adrenal insufficiency
     Dosage: LONG TERM
     Route: 065

REACTIONS (1)
  - Histoplasmosis disseminated [Recovered/Resolved]
